FAERS Safety Report 7974061-7 (Version None)
Quarter: 2011Q4

REPORT INFORMATION
  Report Type: 
  Country: None (occurrence: None)
  Receive Date: 20111213
  Receipt Date: 20111208
  Transmission Date: 20120403
  Serious: Yes (Other)
  Sender: FDA-Public Use
  Company Number: DE-GLAXOSMITHKLINE-D0073454A

PATIENT
  Sex: Male

DRUGS (4)
  1. VIMPAT [Concomitant]
     Indication: EPILEPSY
     Dosage: 400MG PER DAY
     Route: 048
     Dates: start: 20100101
  2. ZEBINIX [Concomitant]
     Indication: EPILEPSY
     Dosage: 800MG PER DAY
     Route: 048
  3. TROBALT [Suspect]
     Indication: EPILEPSY
     Dosage: 100MG THREE TIMES PER DAY
     Route: 048
     Dates: start: 20111109, end: 20111114
  4. LAMOTRIGINE [Concomitant]
     Indication: EPILEPSY
     Dosage: 200MG PER DAY
     Route: 048
     Dates: start: 20100101

REACTIONS (1)
  - EPILEPSY [None]
